FAERS Safety Report 7784445-8 (Version None)
Quarter: 2011Q3

REPORT INFORMATION
  Report Type: 
  Country: None (occurrence: None)
  Receive Date: 20110928
  Receipt Date: 20110912
  Transmission Date: 20111222
  Serious: Yes (Death, Other)
  Sender: FDA-Public Use
  Company Number: FR-SANOFI-AVENTIS-2011SA058947

PATIENT

DRUGS (32)
  1. PANTOPRAZOLE [Suspect]
     Route: 065
  2. HYDROCHLOROTHIAZIDE [Suspect]
     Route: 065
  3. TRAMADOL [Suspect]
     Route: 065
  4. ETOPOSIDE [Suspect]
     Route: 065
  5. ACEBUTOLOL HYDROCHLORIDE [Suspect]
     Route: 065
  6. MIRTAZAPINE [Suspect]
     Route: 065
  7. GLICLAZIDE [Suspect]
     Route: 065
  8. ESCITALOPRAM [Suspect]
     Route: 065
  9. DESMOPRESSIN ACETATE [Suspect]
     Indication: NOCTURIA
     Route: 065
  10. PACLITAXEL [Suspect]
     Route: 065
  11. CHLORPROMAZINE [Suspect]
     Route: 065
  12. SPIRONOLACTONE [Suspect]
     Route: 065
  13. INDAPAMIDE [Suspect]
     Route: 065
  14. RABEPRAZOLE SODIUM [Suspect]
     Route: 065
  15. IRBESARTAN [Suspect]
     Route: 065
  16. LOSARTAN POTASSIUM [Suspect]
     Route: 065
  17. CARBAMAZEPINE [Suspect]
     Route: 065
  18. SERTRALINE HYDROCHLORIDE [Suspect]
     Route: 065
  19. FLUOXETINE [Suspect]
     Route: 065
  20. OMEPRAZOLE [Suspect]
     Route: 065
  21. OXCARBAZEPINE [Suspect]
     Route: 065
  22. NITRENDIPINE [Suspect]
     Route: 065
  23. METOPIMAZINE [Suspect]
     Route: 065
  24. PAROXETINE HCL [Suspect]
     Route: 065
  25. RAMIPRIL [Suspect]
     Route: 065
  26. CITALOPRAM [Suspect]
     Route: 065
  27. NITROGLYCERIN [Suspect]
     Route: 065
  28. FUROSEMIDE [Suspect]
     Route: 065
  29. RISPERIDONE [Suspect]
     Route: 065
  30. AMITRIPTYLINE HCL [Suspect]
     Route: 065
  31. TEMISARTAN [Suspect]
     Route: 065
  32. AMLODIPINE [Suspect]
     Route: 065

REACTIONS (1)
  - HYPONATRAEMIA [None]
